FAERS Safety Report 5188309-8 (Version None)
Quarter: 2006Q4

REPORT INFORMATION
  Report Type: 
  Country: None (occurrence: None)
  Receive Date: 20061221
  Receipt Date: 20061212
  Transmission Date: 20070319
  Serious: Yes (Life-Threatening, Hospitalization)
  Sender: FDA-Public Use
  Company Number: ES-ROCHE-475012

PATIENT
  Age: 76 Year
  Sex: Female

DRUGS (5)
  1. DILUTOL [Suspect]
     Indication: DRUG USE FOR UNKNOWN INDICATION
     Route: 048
     Dates: start: 20051110, end: 20060313
  2. CAPOTEN [Suspect]
     Indication: DRUG USE FOR UNKNOWN INDICATION
     Route: 048
     Dates: start: 20051110, end: 20060313
  3. COROPRES [Concomitant]
     Route: 048
     Dates: end: 20060313
  4. ESERTIA [Concomitant]
     Route: 048
  5. TRANKIMAZIN [Concomitant]
     Route: 048

REACTIONS (5)
  - DIZZINESS [None]
  - HYPOTENSION [None]
  - NAUSEA [None]
  - RENAL IMPAIRMENT [None]
  - VOMITING [None]
